FAERS Safety Report 9444803 (Version 1)
Quarter: 2013Q3

REPORT INFORMATION
  Report Type: Spontaneous
  Country: ES (occurrence: ES)
  Receive Date: 20130807
  Receipt Date: 20130807
  Transmission Date: 20140515
  Serious: Yes (Hospitalization)
  Sender: FDA-Public Use
  Company Number: ES-B.I. PHARMACEUTICALS,INC./RIDGEFIELD-2013-BI-22733GD

PATIENT
  Age: 57 Year
  Sex: Female

DRUGS (2)
  1. BISACODYL [Suspect]
     Indication: BOWEL PREPARATION
     Dosage: 2 ANZ
     Route: 048
  2. CITRAFLEET [Suspect]
     Indication: BOWEL PREPARATION
     Dosage: TWO SACHETS

REACTIONS (4)
  - Rhabdomyolysis [Unknown]
  - Grand mal convulsion [Unknown]
  - Hyponatraemia [Unknown]
  - Disorientation [Unknown]
